FAERS Safety Report 5535591-0 (Version None)
Quarter: 2007Q4

REPORT INFORMATION
  Report Type: 
  Country: None (occurrence: None)
  Receive Date: 20071206
  Receipt Date: 20070102
  Transmission Date: 20080405
  Serious: Yes (Hospitalization)
  Sender: FDA-Public Use
  Company Number: US-AMGEN-US204141

PATIENT
  Sex: Female

DRUGS (10)
  1. ENBREL [Suspect]
     Indication: RHEUMATOID ARTHRITIS
     Route: 058
     Dates: start: 20000501, end: 20061012
  2. COUMADIN [Concomitant]
     Dates: start: 20030110
  3. CYTOMEL [Concomitant]
     Dates: start: 20030110
  4. DIOVAN [Concomitant]
     Dates: start: 20030110
  5. SYNTHROID [Concomitant]
     Dates: start: 20030110
  6. RANITIDINE HCL [Concomitant]
     Dates: start: 20030110
  7. ARAVA [Concomitant]
     Dates: start: 20030110
  8. LEUCOVORIN CALCIUM [Concomitant]
     Dates: start: 20030110
  9. PLAVIX [Concomitant]
     Dates: start: 20030110
  10. COLCHICINE [Concomitant]
     Dates: start: 20030110

REACTIONS (2)
  - CELLULITIS [None]
  - LOCALISED INFECTION [None]
